FAERS Safety Report 6184980-2 (Version None)
Quarter: 2009Q2

REPORT INFORMATION
  Report Type: 
  Country: None (occurrence: None)
  Receive Date: 20090511
  Receipt Date: 20090224
  Transmission Date: 20091009
  Serious: No
  Sender: FDA-Public Use
  Company Number: A0770215A

PATIENT
  Age: 70 Year
  Sex: Female

DRUGS (12)
  1. COREG CR [Suspect]
     Indication: HYPERTENSION
     Dosage: 40MG PER DAY
     Route: 048
     Dates: start: 20090201, end: 20090222
  2. LISINOPRIL [Concomitant]
  3. PLAVIX [Concomitant]
  4. NEXIUM [Concomitant]
  5. SYNTHROID [Concomitant]
  6. WELCHOL [Concomitant]
  7. TRICOR [Concomitant]
  8. PAXIL [Concomitant]
  9. LOVAZA [Concomitant]
  10. ASPIRIN [Concomitant]
  11. VITAMIN [Concomitant]
  12. CALCIUM [Concomitant]

REACTIONS (4)
  - ARTHRALGIA [None]
  - INSOMNIA [None]
  - MYALGIA [None]
  - PAIN [None]
